FAERS Safety Report 4338146-9 (Version None)
Quarter: 2004Q2

REPORT INFORMATION
  Report Type: 
  Country: None (occurrence: None)
  Receive Date: 20040407
  Receipt Date: 20040325
  Transmission Date: 20050107
  Serious: Yes (Other)
  Sender: FDA-Public Use
  Company Number: 2004206676IT

PATIENT
  Age: 35 Year
  Sex: Male

DRUGS (5)
  1. ZYVOX [Suspect]
     Indication: STAPHYLOCOCCAL SEPSIS
     Dosage: 600 MG, BID; IV
     Route: 042
     Dates: start: 20040131, end: 20040204
  2. DEPAKENE [Concomitant]
  3. LORSILAN [Concomitant]
  4. RIVOTRIL [Concomitant]
  5. TENORMIN [Concomitant]

REACTIONS (1)
  - EPILEPSY [None]
